FAERS Safety Report 9521927 (Version 1)
Quarter: 2013Q3

REPORT INFORMATION
  Report Type: Spontaneous
  Country: US (occurrence: None)
  Receive Date: 20130911
  Receipt Date: 20130911
  Transmission Date: 20140515
  Serious: No
  Sender: FDA-Public Use
  Company Number: AEUSA201300060

PATIENT
  Age: 46 Year
  Sex: Male

DRUGS (11)
  1. GAMMAKED [Suspect]
     Indication: IMMUNODEFICIENCY COMMON VARIABLE
     Route: 042
     Dates: start: 20130116, end: 20130116
  2. AMITRIPTYLINE [Concomitant]
  3. DEPAKOTE ER ( VALPROATE SEMISODIUM) [Concomitant]
  4. HYDROCHLOROTHIAZIDE [Concomitant]
  5. ALBUTEROL /00139501/ [Concomitant]
  6. BUDESONIDE [Concomitant]
  7. PERCOCET /00446701/ [Concomitant]
  8. MORPHINE [Concomitant]
  9. PROPRANOLOL [Concomitant]
  10. BENADRYL /00000402/ [Concomitant]
  11. PARACETAMOL [Concomitant]

REACTIONS (4)
  - Headache [None]
  - Vision blurred [None]
  - Infusion related reaction [None]
  - Photophobia [None]
